FAERS Safety Report 21979872 (Version 1)
Quarter: 2023Q1

REPORT INFORMATION
  Report Type: Report from Study
  Country: IT (occurrence: IT)
  Receive Date: 20230210
  Receipt Date: 20230210
  Transmission Date: 20230418
  Serious: Yes (Other)
  Sender: FDA-Public Use
  Company Number: IT-BRISTOL-MYERS SQUIBB COMPANY-2022-085075

PATIENT
  Age: 74 Year
  Sex: Male
  Weight: 75 kg

DRUGS (5)
  1. IPILIMUMAB [Suspect]
     Active Substance: IPILIMUMAB
     Indication: Pleural mesothelioma
     Route: 042
     Dates: start: 20211224, end: 20221028
  2. NIVOLUMAB [Suspect]
     Active Substance: NIVOLUMAB
     Indication: Pleural mesothelioma
     Route: 042
     Dates: start: 20211224, end: 20221028
  3. PANTOPRAZOLE [Concomitant]
     Active Substance: PANTOPRAZOLE
     Indication: Gastrointestinal disorder prophylaxis
     Route: 048
  4. LEVOTIRSOL [Concomitant]
     Indication: Hypothyroidism
     Route: 048
  5. OLMESARTAN MEDOXOMIL [Concomitant]
     Active Substance: OLMESARTAN MEDOXOMIL
     Indication: Hypertension
     Route: 048

REACTIONS (2)
  - Adrenal insufficiency [Recovering/Resolving]
  - Immune thrombocytopenia [Recovering/Resolving]

NARRATIVE: CASE EVENT DATE: 20220624
